FAERS Safety Report 4493814-3 (Version None)
Quarter: 2004Q4

REPORT INFORMATION
  Report Type: 
  Country: None (occurrence: None)
  Receive Date: 20041102
  Receipt Date: 20041020
  Transmission Date: 20050328
  Serious: Yes (Other)
  Sender: FDA-Public Use
  Company Number: USA041081689

PATIENT
  Age: 42 Year
  Sex: Male

DRUGS (10)
  1. XIGRIS [Suspect]
     Indication: SEPTIC SHOCK
     Dates: start: 20041018
  2. VANCOMYCIN [Concomitant]
  3. RIFAMPICIN [Concomitant]
  4. OXACILLIN [Concomitant]
  5. FENTANYL [Concomitant]
  6. VERSED [Concomitant]
  7. PEPCID [Concomitant]
  8. NOREPINEPHRINE [Concomitant]
  9. CALCIUM [Concomitant]
  10. INSULIN [Concomitant]

REACTIONS (1)
  - PLATELET COUNT DECREASED [None]
